FAERS Safety Report 22291232 (Version 1)
Quarter: 2023Q2

REPORT INFORMATION
  Report Type: Report from Study
  Country: US (occurrence: US)
  Receive Date: 20230506
  Receipt Date: 20230506
  Transmission Date: 20230721
  Serious: Yes (Other)
  Sender: FDA-Public Use
  Company Number: US-AUROBINDO-AUR-APL-2023-034259

PATIENT
  Age: 55 Year
  Sex: Male

DRUGS (2)
  1. TERIFLUNOMIDE [Interacting]
     Active Substance: TERIFLUNOMIDE
     Indication: Multiple sclerosis
     Dosage: UNK
     Route: 065
  2. JANSSEN COVID-19 VACCINE [Interacting]
     Active Substance: AD26.COV2.S
     Indication: COVID-19 immunisation
     Dosage: UNK
     Route: 065

REACTIONS (3)
  - Humoral immune defect [Unknown]
  - COVID-19 [Unknown]
  - Drug interaction [Unknown]
